FAERS Safety Report 8776900 (Version 1)
Quarter: 2012Q4

REPORT INFORMATION
  Report Type: 
  Country: US (occurrence: US)
  Receive Date: 20120911
  Receipt Date: 20120911
  Transmission Date: 20130627
  Serious: Yes (Other)
  Sender: FDA-Public Use
  Company Number: US-JNJFOC-20120902825

PATIENT

DRUGS (3)
  1. APAP [Suspect]
     Route: 065
  2. APAP [Suspect]
     Indication: PRODUCT USED FOR UNKNOWN INDICATION
     Route: 065
  3. OPIATES [Suspect]
     Indication: PRODUCT USED FOR UNKNOWN INDICATION
     Route: 065

REACTIONS (4)
  - Hypoglycaemia [Unknown]
  - Hepatic enzyme increased [Unknown]
  - Prothrombin time prolonged [Unknown]
  - Acidosis [Unknown]
